FAERS Safety Report 4686627-0 (Version None)
Quarter: 2005Q2

REPORT INFORMATION
  Report Type: 
  Country: None (occurrence: None)
  Receive Date: 20050607
  Receipt Date: 20040713
  Transmission Date: 20051028
  Serious: Yes (Hospitalization)
  Sender: FDA-Public Use
  Company Number: 2004047914

PATIENT
  Age: 67 Year
  Sex: Male
  Weight: 88.4514 kg

DRUGS (8)
  1. LIPITOR [Suspect]
     Indication: BLOOD CHOLESTEROL
     Dosage: ORAL
     Route: 048
     Dates: start: 19960101
  2. CELEBREX [Suspect]
     Indication: BURSITIS
     Dosage: 200 MG (200 MG, 1 IN 1 D), ORAL
     Route: 048
     Dates: start: 19960101
  3. ALEVE [Concomitant]
     Indication: BURSITIS
  4. ALPRAZOLAM [Suspect]
     Indication: ANXIETY DISORDER
     Dosage: 0.25 MG (0.125 MG, 2 IN 1 D), ORAL
     Route: 048
     Dates: start: 19940101
  5. DIOVAN HCT [Concomitant]
  6. LANOXIN [Concomitant]
  7. ASPIRIN [Concomitant]
  8. WARFARIN SODIUM [Concomitant]

REACTIONS (5)
  - BLOOD TEST ABNORMAL [None]
  - BURSITIS [None]
  - DYSPEPSIA [None]
  - HEART RATE IRREGULAR [None]
  - MYOCARDIAL INFARCTION [None]
